FAERS Safety Report 23389833 (Version 1)
Quarter: 2024Q1

REPORT INFORMATION
  Report Type: Spontaneous
  Country: US (occurrence: US)
  Receive Date: 20240111
  Receipt Date: 20240111
  Transmission Date: 20240410
  Serious: Yes (Other)
  Sender: FDA-Public Use
  Company Number: US-VIIV HEALTHCARE LIMITED-US2024AMR001222

PATIENT
  Sex: Male

DRUGS (2)
  1. RILPIVIRINE [Suspect]
     Active Substance: RILPIVIRINE
     Indication: HIV infection
     Dosage: UNK, Q2M, CABOTEGRAVIR  600 MG (3 ML) AND RILPIVIRINE 900 MG (3ML)
     Route: 030
     Dates: start: 20230213
  2. CABOTEGRAVIR [Suspect]
     Active Substance: CABOTEGRAVIR
     Indication: HIV infection
     Dosage: UNK, Q2M, CABOTEGRAVIR  600 MG (3 ML) AND RILPIVIRINE 900 MG (3ML)
     Route: 030
     Dates: start: 20230213

REACTIONS (2)
  - Neuropathy peripheral [Unknown]
  - Temperature intolerance [Unknown]
